FAERS Safety Report 9337495 (Version 1)
Quarter: 2013Q2

REPORT INFORMATION
  Report Type: Spontaneous
  Country: AU (occurrence: AU)
  Receive Date: 20130607
  Receipt Date: 20130607
  Transmission Date: 20140414
  Serious: Yes (Death, Other)
  Sender: FDA-Public Use
  Company Number: AU-CELGENEUS-008-50794-13054489

PATIENT
  Sex: 0

DRUGS (4)
  1. VIDAZA [Suspect]
     Indication: MYELODYSPLASTIC SYNDROME
     Route: 065
  2. VIDAZA [Suspect]
     Indication: ACUTE MYELOID LEUKAEMIA
  3. REVLIMID [Suspect]
     Indication: MYELODYSPLASTIC SYNDROME
     Route: 048
  4. REVLIMID [Suspect]
     Indication: ACUTE MYELOID LEUKAEMIA

REACTIONS (14)
  - Infection [Fatal]
  - Haemorrhage intracranial [Unknown]
  - Haemorrhage [Unknown]
  - Embolism venous [Unknown]
  - Cardiac arrest [Unknown]
  - Febrile neutropenia [Unknown]
  - Abdominal infection [Unknown]
  - Respiratory tract infection [Unknown]
  - Sepsis [Unknown]
  - Anaemia [Unknown]
  - Neutropenia [Unknown]
  - Thrombocytopenia [Unknown]
  - Adverse event [Unknown]
  - Fatigue [Unknown]
